FAERS Safety Report 6068848-8 (Version None)
Quarter: 2009Q1

REPORT INFORMATION
  Report Type: 
  Country: None (occurrence: None)
  Receive Date: 20090206
  Receipt Date: 20090203
  Transmission Date: 20090719
  Serious: Yes (Death, Other)
  Sender: FDA-Public Use
  Company Number: US-CELGENEUS-163-21880-08120352

PATIENT
  Sex: Male

DRUGS (4)
  1. REVLIMID [Suspect]
     Indication: MULTIPLE MYELOMA
     Route: 048
     Dates: start: 20080918, end: 20080101
  2. REVLIMID [Suspect]
     Route: 048
     Dates: start: 20080718, end: 20080901
  3. REVLIMID [Suspect]
     Dosage: 10MG, 25MG
     Route: 048
     Dates: start: 20070402, end: 20070701
  4. REVLIMID [Suspect]
     Route: 048
     Dates: start: 20060609, end: 20060801

REACTIONS (2)
  - MULTIPLE MYELOMA [None]
  - PNEUMONIA [None]
